FAERS Safety Report 17921885 (Version 1)
Quarter: 2020Q2

REPORT INFORMATION
  Report Type: Spontaneous
  Country: US (occurrence: US)
  Receive Date: 20200619
  Receipt Date: 20200619
  Transmission Date: 20200714
  Serious: Yes (Death)
  Sender: FDA-Public Use
  Company Number: None

PATIENT
  Sex: Female

DRUGS (20)
  1. CALCIUM+D [Concomitant]
     Active Substance: CALCIUM\VITAMIN D
  2. LANTUS SOLOS [Concomitant]
  3. TAMSULOSIN [Concomitant]
     Active Substance: TAMSULOSIN
  4. NEULASTA [Suspect]
     Active Substance: PEGFILGRASTIM
     Indication: PANCREATIC CARCINOMA
     Route: 058
  5. CEPHALEXIN. [Concomitant]
     Active Substance: CEPHALEXIN
  6. GABAPENTIN. [Concomitant]
     Active Substance: GABAPENTIN
  7. SOD CHLORIDE [Concomitant]
     Active Substance: SODIUM CHLORIDE
  8. CREON [Concomitant]
     Active Substance: PANCRELIPASE AMYLASE\PANCRELIPASE LIPASE\PANCRELIPASE PROTEASE
  9. ELIIQUIS [Concomitant]
  10. METHYLPRED [Concomitant]
     Active Substance: METHYLPREDNISOLONE
  11. METOPROL SUC [Concomitant]
  12. ALPRAZOLAM. [Concomitant]
     Active Substance: ALPRAZOLAM
  13. DOK [Concomitant]
     Active Substance: DOCUSATE SODIUM
  14. HYPDROCO/APAP [Concomitant]
  15. BASAGLAR [Concomitant]
     Active Substance: INSULIN GLARGINE
  16. AMLODIPINE [Concomitant]
     Active Substance: AMLODIPINE BESYLATE
  17. ONDANSETRON [Concomitant]
     Active Substance: ONDANSETRON
  18. CEPHALXEIN [Concomitant]
  19. CITALOPRAM [Concomitant]
     Active Substance: CITALOPRAM HYDROBROMIDE
  20. PANTOPRAZOLE [Suspect]
     Active Substance: PANTOPRAZOLE

REACTIONS (1)
  - Death [None]
